FAERS Safety Report 5023088-6 (Version None)
Quarter: 2006Q2

REPORT INFORMATION
  Report Type: 
  Country: None (occurrence: None)
  Receive Date: 20060612
  Receipt Date: 20060608
  Transmission Date: 20061013
  Serious: Yes (Death)
  Sender: FDA-Public Use
  Company Number: PHBS2006PT08554

PATIENT
  Age: 75 Year
  Sex: Female

DRUGS (3)
  1. CO-DIOVAN [Suspect]
     Indication: HYPERTENSION
     Dosage: VALS 80 / HCT 12.5 MG/DAY
     Route: 048
  2. INIBACE PLUS [Concomitant]
  3. LANOXIN [Concomitant]
     Dosage: 1 TABLET/DAY
     Route: 048

REACTIONS (1)
  - DEATH [None]
